FAERS Safety Report 23011487 (Version 3)
Quarter: 2023Q4

REPORT INFORMATION
  Report Type: Report from Study
  Country: IL (occurrence: IL)
  Receive Date: 20230929
  Receipt Date: 20231120
  Transmission Date: 20240109
  Serious: Yes (Hospitalization, Other)
  Sender: FDA-Public Use
  Company Number: IL-JNJFOC-20230960230

PATIENT
  Age: 25 Year
  Sex: Male

DRUGS (3)
  1. ESKETAMINE [Suspect]
     Active Substance: ESKETAMINE
     Indication: Depression
     Dosage: 56 MG (2 DEVICES)
     Dates: start: 20221026, end: 20221026
  2. ESKETAMINE [Suspect]
     Active Substance: ESKETAMINE
     Dosage: 84 MG (3 DEVICES)?RECEIVED DOSES ON 02-11-2022, 07-11-2022, 09-11-2022, 14-11-2022, 16-11-2022, 21-1
     Dates: start: 20221031, end: 20230911
  3. CLONAZEPAM [Suspect]
     Active Substance: CLONAZEPAM
     Indication: Product used for unknown indication
     Route: 065

REACTIONS (3)
  - Suicidal ideation [Recovered/Resolved]
  - Drug abuser [Recovering/Resolving]
  - Drug dependence [Recovering/Resolving]

NARRATIVE: CASE EVENT DATE: 20230624
